FAERS Safety Report 24340662 (Version 2)
Quarter: 2024Q4

REPORT INFORMATION
  Report Type: Spontaneous
  Country: US (occurrence: US)
  Receive Date: 20240919
  Receipt Date: 20241121
  Transmission Date: 20250115
  Serious: No
  Sender: MYLAN
  Company Number: US-MYLANLABS-2024M1083425

PATIENT
  Sex: Female
  Weight: 56.47 kg

DRUGS (2)
  1. TYRVAYA [Suspect]
     Active Substance: VARENICLINE TARTRATE
     Indication: Dry eye
     Dosage: UNK
     Route: 045
     Dates: start: 20240628
  2. TYRVAYA [Suspect]
     Active Substance: VARENICLINE TARTRATE
     Dosage: 0.03 MILLIGRAM, BID (APPLIED ONE SPRAY TO EACH NOSTRIL TWICE DAILY)
     Route: 045

REACTIONS (2)
  - Product delivery mechanism issue [Unknown]
  - Expired product administered [Unknown]
